FAERS Safety Report 5698241-9 (Version None)
Quarter: 2008Q2

REPORT INFORMATION
  Report Type: 
  Country: None (occurrence: None)
  Receive Date: 20080408
  Receipt Date: 20080328
  Transmission Date: 20081010
  Serious: Yes (Life-Threatening)
  Sender: FDA-Public Use
  Company Number: IT-PFIZER INC-2008026133

PATIENT
  Sex: Male

DRUGS (2)
  1. ZITHROMAX [Suspect]
     Indication: INFLUENZA
     Route: 048
     Dates: start: 20080301, end: 20080303
  2. TACHIPIRINA [Suspect]
     Indication: INFLUENZA
     Route: 048
     Dates: start: 20080229, end: 20080303

REACTIONS (2)
  - PERICARDIAL EFFUSION [None]
  - RHABDOMYOLYSIS [None]
